FAERS Safety Report 20502260 (Version 1)
Quarter: 2022Q1

REPORT INFORMATION
  Report Type: Spontaneous
  Country: US (occurrence: US)
  Receive Date: 20220222
  Receipt Date: 20220222
  Transmission Date: 20220423
  Serious: No
  Sender: FDA-Public Use
  Company Number: US-NOVOPROD-814580

PATIENT
  Sex: Female

DRUGS (1)
  1. SAXENDA [Suspect]
     Active Substance: LIRAGLUTIDE
     Indication: Product used for unknown indication
     Dosage: 3 MG, QD
     Route: 058
     Dates: start: 20210513

REACTIONS (8)
  - Gastrointestinal sounds abnormal [Not Recovered/Not Resolved]
  - Hypophagia [Unknown]
  - Positive airway pressure therapy [Unknown]
  - Retching [Not Recovered/Not Resolved]
  - Nausea [Not Recovered/Not Resolved]
  - Eructation [Not Recovered/Not Resolved]
  - Malaise [Not Recovered/Not Resolved]
  - Product communication issue [Unknown]

NARRATIVE: CASE EVENT DATE: 20210501
